FAERS Safety Report 24604749 (Version 1)
Quarter: 2024Q4

REPORT INFORMATION
  Report Type: Spontaneous
  Country: US (occurrence: US)
  Receive Date: 20241111
  Receipt Date: 20241111
  Transmission Date: 20250115
  Serious: No
  Sender: IPSEN BIOPHARMACEUTICALS, INC.
  Company Number: US-IPSEN Group, Research and Development-2024-22945

PATIENT
  Sex: Female
  Weight: 55 kg

DRUGS (1)
  1. SOMATULINE DEPOT [Suspect]
     Active Substance: LANREOTIDE ACETATE
     Indication: Gastroenteropancreatic neuroendocrine tumour disease
     Dosage: DEEP (BUTTOCKS) (STARTED 18-19 MONTHS AGO)
     Route: 058

REACTIONS (2)
  - Injection site pruritus [Recovered/Resolved]
  - Weight decreased [Not Recovered/Not Resolved]
